FAERS Safety Report 9495690 (Version 1)
Quarter: 2013Q3

REPORT INFORMATION
  Report Type: Spontaneous
  Country: US (occurrence: US)
  Receive Date: 20130903
  Receipt Date: 20130903
  Transmission Date: 20140515
  Serious: Yes (Hospitalization)
  Sender: FDA-Public Use
  Company Number: US-B.I. PHARMACEUTICALS,INC./RIDGEFIELD-2013-BI-26597BP

PATIENT
  Age: 66 Year
  Sex: Male

DRUGS (6)
  1. SPIRIVA [Suspect]
     Indication: CHRONIC OBSTRUCTIVE PULMONARY DISEASE
     Dosage: 18 MCG
     Route: 055
     Dates: start: 201307
  2. OXYCODONE [Concomitant]
     Indication: RHEUMATOID ARTHRITIS
  3. PROMETHAZINE [Concomitant]
     Route: 048
  4. CORTISONE INJECTION [Concomitant]
     Indication: RHEUMATOID ARTHRITIS
  5. FLOMAX [Concomitant]
     Indication: URINARY TRACT DISORDER
     Dosage: 0.8 MG
     Route: 048
  6. BENZONATATE [Concomitant]
     Indication: COUGH
     Route: 048

REACTIONS (4)
  - Pneumonia [Recovered/Resolved]
  - Lower limb fracture [Not Recovered/Not Resolved]
  - Concussion [Recovered/Resolved]
  - Dyspepsia [Not Recovered/Not Resolved]
